FAERS Safety Report 13987005 (Version 1)
Quarter: 2017Q3

REPORT INFORMATION
  Report Type: Spontaneous
  Country: US (occurrence: US)
  Receive Date: 20170919
  Receipt Date: 20170919
  Transmission Date: 20171128
  Serious: No
  Sender: FDA-Public Use
  Company Number: US-ALLERGAN-1735015US

PATIENT
  Sex: Female

DRUGS (2)
  1. LILETTA [Suspect]
     Active Substance: LEVONORGESTREL
     Indication: HORMONE LEVEL ABNORMAL
  2. LILETTA [Suspect]
     Active Substance: LEVONORGESTREL
     Indication: DYSMENORRHOEA
     Dosage: 52 MG
     Route: 015

REACTIONS (3)
  - Uterine spasm [Unknown]
  - Off label use [Unknown]
  - Procedural pain [Unknown]

NARRATIVE: CASE EVENT DATE: 20170811
